FAERS Safety Report 18746956 (Version 2)
Quarter: 2021Q1

REPORT INFORMATION
  Report Type: Spontaneous
  Country: DE (occurrence: DE)
  Receive Date: 20210115
  Receipt Date: 20210204
  Transmission Date: 20210419
  Serious: Yes (Other)
  Sender: FDA-Public Use
  Company Number: DE-ASTELLAS-2021US001626

PATIENT
  Age: 6 Decade
  Sex: Female

DRUGS (4)
  1. REGADENOSON [Suspect]
     Active Substance: REGADENOSON
     Indication: ISCHAEMIA
     Dosage: UNK UNK, SINGLE
     Route: 065
     Dates: start: 2020, end: 2020
  2. REGADENOSON [Suspect]
     Active Substance: REGADENOSON
     Indication: ISCHAEMIA
     Dosage: UNK UNK, SINGLE
     Route: 065
     Dates: start: 2020, end: 2020
  3. REGADENOSON [Suspect]
     Active Substance: REGADENOSON
     Indication: ISCHAEMIA
     Dosage: UNK UNK, SINGLE
     Route: 065
     Dates: start: 2020, end: 2020
  4. REGADENOSON [Suspect]
     Active Substance: REGADENOSON
     Indication: ISCHAEMIA
     Dosage: UNK UNK, SINGLE
     Route: 065
     Dates: start: 2020, end: 2020

REACTIONS (2)
  - Depressed level of consciousness [Recovered/Resolved]
  - Seizure [Recovered/Resolved]
